FAERS Safety Report 6599190-4 (Version None)
Quarter: 2010Q1

REPORT INFORMATION
  Report Type: 
  Country: None (occurrence: None)
  Receive Date: 20100224
  Receipt Date: 20100211
  Transmission Date: 20100710
  Serious: No
  Sender: FDA-Public Use
  Company Number: US-B.I. PHARMACEUTICALS,INC./RIDGEFIELD-2010-BP-01728BP

PATIENT
  Age: 66 Year
  Sex: Male

DRUGS (4)
  1. SPIRIVA [Suspect]
     Indication: CHRONIC OBSTRUCTIVE PULMONARY DISEASE
     Dosage: 18 MCG
     Route: 055
     Dates: start: 20050101
  2. SIMVASTATIN [Concomitant]
     Indication: BLOOD CHOLESTEROL INCREASED
  3. MOEXIPRIL HYDROCHLORIDE [Concomitant]
     Indication: HYPERTENSION
  4. PAROXETENE-CR [Concomitant]
     Indication: DEPRESSION

REACTIONS (2)
  - COUGH [None]
  - INCREASED BRONCHIAL SECRETION [None]
